FAERS Safety Report 9701236 (Version 3)
Quarter: 2015Q3

REPORT INFORMATION
  Report Type: Spontaneous
  Country: US (occurrence: US)
  Receive Date: 20131121
  Receipt Date: 20150803
  Transmission Date: 20151125
  Serious: No
  Sender: FDA-Public Use
  Company Number: US-GILEAD-2008-0016007

PATIENT
  Age: 57 Year
  Sex: Female
  Weight: 77.11 kg

DRUGS (9)
  1. METHOTREXATE [Concomitant]
     Active Substance: METHOTREXATE
     Route: 048
  2. LOPRESSOR [Concomitant]
     Active Substance: METOPROLOL TARTRATE
     Route: 048
  3. ATIVAN [Concomitant]
     Active Substance: LORAZEPAM
     Route: 048
  4. CALCIUM [Concomitant]
     Active Substance: CALCIUM
     Route: 048
  5. LETAIRIS [Suspect]
     Active Substance: AMBRISENTAN
     Indication: PULMONARY ARTERIAL HYPERTENSION
     Route: 048
     Dates: start: 20080404
  6. PRINIVIL [Concomitant]
     Active Substance: LISINOPRIL
     Route: 048
  7. REVATIO [Concomitant]
     Active Substance: SILDENAFIL CITRATE
     Route: 048
  8. FOLIC ACID. [Concomitant]
     Active Substance: FOLIC ACID
     Route: 048
  9. ANACIN (ASPIRIN\CAFFEINE) [Concomitant]
     Active Substance: ASPIRIN\CAFFEINE
     Route: 048

REACTIONS (7)
  - Arthralgia [Unknown]
  - Joint stiffness [Unknown]
  - Headache [Unknown]
  - Palpitations [Unknown]
  - Drug interaction [Unknown]
  - Fatigue [Unknown]
  - Asthenia [Unknown]
